FAERS Safety Report 18652600 (Version 2)
Quarter: 2021Q3

REPORT INFORMATION
  Report Type: Report from Study
  Country: SE (occurrence: DE)
  Receive Date: 20201223
  Receipt Date: 20210714
  Transmission Date: 20211014
  Serious: Yes (Hospitalization, Other)
  Sender: FDA-Public Use
  Company Number: DE-TAKEDA-DE202010401

PATIENT
  Age: 61 Year
  Weight: 74 kg

DRUGS (44)
  1. UNACID PD [SULTAMICILLIN TOSILATE] [Concomitant]
     Active Substance: SULTAMICILLIN TOSYLATE
     Indication: ASPERGILLUS INFECTION
     Dosage: UNK, BID
     Route: 048
     Dates: start: 20150611, end: 20150625
  2. FORMATRIS [Concomitant]
     Active Substance: FORMOTEROL FUMARATE
     Indication: TUBERCULOSIS
     Dosage: UNK DOSAGE FORM, QD
     Route: 050
     Dates: start: 20170101
  3. TAZOBACTAM [Concomitant]
     Active Substance: TAZOBACTAM
     Indication: URINARY TRACT INFECTION
     Dosage: UNK
     Route: 048
     Dates: start: 20200102
  4. ADVATE [Suspect]
     Active Substance: ANTIHEMOPHILIC FACTOR, HUMAN RECOMBINANT
     Dosage: 3000 INTERNATIONAL UNIT, 3/WEEK
     Route: 065
  5. AVALOX [Concomitant]
     Active Substance: MOXIFLOXACIN HYDROCHLORIDE
     Indication: TUBERCULOSIS
     Dosage: 400 UNK
     Route: 048
     Dates: start: 20110729, end: 2011
  6. OXIS [Concomitant]
     Active Substance: FORMOTEROL FUMARATE
     Indication: TUBERCULOSIS
     Dosage: 6 MICROGRAM, BID
     Route: 050
     Dates: start: 20120717, end: 2017
  7. RIFABUTIN. [Concomitant]
     Active Substance: RIFABUTIN
     Indication: TUBERCULOSIS
     Dosage: 150 MILLIGRAM, 3/WEEK
     Route: 048
     Dates: start: 20140303, end: 20140519
  8. TRIMBOW [Concomitant]
     Active Substance: BECLOMETHASONE DIPROPIONATE\FORMOTEROL FUMARATE\GLYCOPYRROLATE
     Indication: CHRONIC OBSTRUCTIVE PULMONARY DISEASE
     Dosage: UNK, BID
     Route: 050
     Dates: start: 20190603
  9. PPI [Concomitant]
     Active Substance: UNSPECIFIED INGREDIENT
     Indication: GASTRITIS
     Dosage: UNK
     Route: 048
     Dates: start: 20191230
  10. SUCRABEST [Concomitant]
     Active Substance: SUCRALFATE
     Indication: GASTRITIS
     Dosage: UNK
     Route: 048
     Dates: start: 20191230
  11. ADVATE [Suspect]
     Active Substance: ANTIHEMOPHILIC FACTOR, HUMAN RECOMBINANT
     Indication: FACTOR VIII DEFICIENCY
     Dosage: 3000 UNKNOWN UNIT
     Route: 042
  12. KALETRA [Concomitant]
     Active Substance: LOPINAVIR\RITONAVIR
     Indication: HIV INFECTION
     Dosage: 1 DOSAGE FORM, BID (PELLET)
     Route: 048
  13. NOVALGIN [CAFFEINE;PARACETAMOL;PROPYPHENAZONE] [Concomitant]
     Active Substance: ACETAMINOPHEN\CAFFEINE\PROPYPHENAZONE
     Indication: PAIN
     Dosage: UNK
     Route: 048
     Dates: start: 20030101
  14. ISONIAZID. [Concomitant]
     Active Substance: ISONIAZID
     Dosage: 300 UNK
     Route: 048
     Dates: start: 20140303, end: 20141203
  15. PYRAFAT [Concomitant]
     Indication: TUBERCULOSIS
     Dosage: 500 MILLIGRAM, QID
     Route: 048
     Dates: start: 20110216, end: 20110727
  16. RIFAMPICIN [Concomitant]
     Active Substance: RIFAMPIN
     Indication: TUBERCULOSIS
     Dosage: 1200 MILLIGRAM, QD
     Route: 048
     Dates: start: 20110216, end: 20110416
  17. PIPERACILLIN. [Concomitant]
     Active Substance: PIPERACILLIN SODIUM
     Indication: URINARY TRACT INFECTION
     Dosage: UNK
     Route: 048
     Dates: start: 20200102
  18. TAZOBACTAM [Concomitant]
     Active Substance: TAZOBACTAM
     Indication: ACUTE KIDNEY INJURY
  19. ADVATE [Suspect]
     Active Substance: ANTIHEMOPHILIC FACTOR, HUMAN RECOMBINANT
     Indication: FACTOR VIII DEFICIENCY
     Dosage: 3000 UNKNOWN UNIT
     Route: 042
  20. ADVATE [Suspect]
     Active Substance: ANTIHEMOPHILIC FACTOR, HUMAN RECOMBINANT
     Dosage: 3000 INTERNATIONAL UNIT, 3/WEEK
     Route: 065
  21. SPIRIVA [Concomitant]
     Active Substance: TIOTROPIUM BROMIDE MONOHYDRATE
     Indication: TUBERCULOSIS
     Dosage: 18 MICROGRAM, QD
     Route: 050
     Dates: end: 20190603
  22. AZITHROMYCIN ANHYDROUS. [Concomitant]
     Active Substance: AZITHROMYCIN ANHYDROUS
     Indication: ASPERGILLUS INFECTION
     Dosage: 250 MILLIGRAM, BID
     Route: 048
     Dates: start: 20150611, end: 20150625
  23. TRUVADA [Concomitant]
     Active Substance: EMTRICITABINE\TENOFOVIR DISOPROXIL FUMARATE
     Indication: HIV INFECTION
     Dosage: 1 DOSAGE FORM, QD (PELLET)
     Route: 048
     Dates: start: 20080316
  24. PYRAFAT [Concomitant]
     Dosage: 500 UNK
     Route: 048
     Dates: start: 20110729, end: 2011
  25. RIFAMPICIN [Concomitant]
     Active Substance: RIFAMPIN
     Dosage: 150 MILLIGRAM, 3/WEEK
     Route: 048
     Dates: start: 20110216, end: 20110416
  26. VITAMIN B6 [Concomitant]
     Active Substance: PYRIDOXINE HYDROCHLORIDE
     Indication: TUBERCULOSIS
     Dosage: UNK, QD
     Route: 048
     Dates: start: 20140303, end: 20141203
  27. FOLSAN [Concomitant]
     Active Substance: FOLIC ACID
     Indication: FOLATE DEFICIENCY
     Dosage: 5 MILLIGRAM, BID
     Route: 048
     Dates: start: 20120717
  28. FERRO?SANOL DUODENAL [Concomitant]
     Active Substance: FERROUS GLYCINE SULFATE
     Indication: IRON DEFICIENCY
     Dosage: UNK, QD
     Route: 048
     Dates: start: 20120717
  29. ADVATE [Suspect]
     Active Substance: ANTIHEMOPHILIC FACTOR, HUMAN RECOMBINANT
     Dosage: 3000 INTERNATIONAL UNIT, 3/WEEK
     Route: 065
  30. PANTOZOL [Concomitant]
     Active Substance: PANTOPRAZOLE SODIUM
     Indication: GASTRITIS
     Dosage: 40 MILLIGRAM, QD
     Route: 048
     Dates: start: 20050101
  31. ISONIAZID. [Concomitant]
     Active Substance: ISONIAZID
     Indication: TUBERCULOSIS
     Dosage: 300 MILLIGRAM, QD
     Route: 048
     Dates: start: 20110216, end: 20110416
  32. PYRAFAT [Concomitant]
     Dosage: 500 MILLIGRAM, QD
     Route: 048
     Dates: start: 20140303, end: 20140519
  33. AVALOX [Concomitant]
     Active Substance: MOXIFLOXACIN HYDROCHLORIDE
     Indication: BRONCHITIS
     Dosage: 400 MILLIGRAM, QD
     Route: 048
     Dates: start: 20110207, end: 20110221
  34. ISONIAZID. [Concomitant]
     Active Substance: ISONIAZID
     Dosage: 300 UNK
     Route: 048
     Dates: start: 20110729, end: 2012
  35. MYAMBUTOL [Concomitant]
     Active Substance: ETHAMBUTOL HYDROCHLORIDE
     Indication: TUBERCULOSIS
     Dosage: 1200 MILLIGRAM, QD
     Route: 048
     Dates: start: 20110216, end: 20110416
  36. PREZISTA [Concomitant]
     Active Substance: DARUNAVIR ETHANOLATE
     Indication: HIV INFECTION
     Dosage: 800 MILLIGRAM, QD
     Route: 048
  37. NOXAFIL [Concomitant]
     Active Substance: POSACONAZOLE
     Indication: ASPERGILLUS INFECTION
     Dosage: 5 MILLILITER, QID
     Route: 048
     Dates: start: 20150611, end: 20150807
  38. AMPHO MORONAL [Concomitant]
     Active Substance: AMPHOTERICIN B
     Indication: OESOPHAGITIS
     Dosage: UNK
     Route: 048
     Dates: start: 20191230
  39. ADVATE [Suspect]
     Active Substance: ANTIHEMOPHILIC FACTOR, HUMAN RECOMBINANT
     Indication: FACTOR VIII DEFICIENCY
     Dosage: 3000 UNKNOWN UNIT
     Route: 042
  40. RAMIPRIL. [Concomitant]
     Active Substance: RAMIPRIL
     Indication: HYPERTONIA
     Dosage: 2.5 MILLIGRAM, QD
     Route: 048
     Dates: start: 20090101
  41. RIFAMPICIN [Concomitant]
     Active Substance: RIFAMPIN
     Dosage: 150 UNK
     Route: 048
     Dates: start: 20110729, end: 2011
  42. MOXIFLOXACIN. [Concomitant]
     Active Substance: MOXIFLOXACIN
     Indication: TUBERCULOSIS
     Dosage: 400 MILLIGRAM, QD
     Route: 048
     Dates: start: 20150320, end: 20150519
  43. ETHAMBUTOL [Concomitant]
     Active Substance: ETHAMBUTOL HYDROCHLORIDE
     Indication: TUBERCULOSIS
     Dosage: 1200 MILLIGRAM, QD
     Route: 048
     Dates: start: 20140303, end: 20140519
  44. PIPERACILLIN. [Concomitant]
     Active Substance: PIPERACILLIN SODIUM
     Indication: ACUTE KIDNEY INJURY

REACTIONS (4)
  - Chronic obstructive pulmonary disease [Recovered/Resolved]
  - Faecaloma [Recovered/Resolved]
  - Renal failure [Recovered/Resolved]
  - Urinary tract infection [Recovered/Resolved]

NARRATIVE: CASE EVENT DATE: 20190521
